FAERS Safety Report 9924998 (Version 2)
Quarter: 2014Q1

REPORT INFORMATION
  Report Type: Spontaneous
  Country: US (occurrence: US)
  Receive Date: 20140226
  Receipt Date: 20140318
  Transmission Date: 20141002
  Serious: No
  Sender: FDA-Public Use
  Company Number: US-009507513-1402USA011824

PATIENT
  Sex: Female
  Weight: 56.69 kg

DRUGS (1)
  1. OXYTROL FOR WOMEN [Suspect]
     Indication: URGE INCONTINENCE
     Dosage: 1 DF, Q4D
     Route: 062
     Dates: start: 20140105

REACTIONS (3)
  - Pain [Unknown]
  - Skin irritation [Unknown]
  - Product adhesion issue [Unknown]
